FAERS Safety Report 8014437-5 (Version None)
Quarter: 2011Q4

REPORT INFORMATION
  Report Type: 
  Country: None (occurrence: None)
  Receive Date: 20111229
  Receipt Date: 20111205
  Transmission Date: 20120403
  Serious: Yes (Death)
  Sender: FDA-Public Use
  Company Number: PHHY2011US108072

PATIENT
  Age: 43 Year
  Sex: Male

DRUGS (5)
  1. GLIPIZIDE [Suspect]
     Route: 048
  2. TRIAMTERENE AND HYDROCHLOROTHIAZIDE [Suspect]
     Route: 048
  3. CAFFEINE CITRATE,ERGOTAMINE TARTRATE [Suspect]
     Route: 048
  4. METFORMIN HCL [Suspect]
     Route: 048
  5. AMLODIPINE BESYLATE [Suspect]
     Route: 048

REACTIONS (2)
  - COMPLETED SUICIDE [None]
  - DRUG LEVEL INCREASED [None]
